FAERS Safety Report 6032312-2 (Version None)
Quarter: 2008Q4

REPORT INFORMATION
  Report Type: 
  Country: None (occurrence: None)
  Receive Date: 20081222
  Receipt Date: 20081114
  Transmission Date: 20090506
  Serious: No
  Sender: FDA-Public Use
  Company Number: US-WYE-H06855008

PATIENT
  Age: 78 Year
  Sex: Female
  Weight: 49.94 kg

DRUGS (3)
  1. PRISTIQ [Suspect]
     Indication: ANXIETY
     Dosage: 50 MG 1X PER 2 DAY, ORAL
     Route: 048
     Dates: start: 20081111, end: 20081113
  2. PRISTIQ [Suspect]
     Indication: DEPRESSION
     Dosage: 50 MG 1X PER 2 DAY, ORAL
     Route: 048
     Dates: start: 20081111, end: 20081113
  3. ATIVAN [Concomitant]

REACTIONS (5)
  - AGITATION [None]
  - ANXIETY [None]
  - CONDITION AGGRAVATED [None]
  - PALPITATIONS [None]
  - PANIC REACTION [None]
